FAERS Safety Report 6285984-1 (Version None)
Quarter: 2009Q3

REPORT INFORMATION
  Report Type: 
  Country: None (occurrence: None)
  Receive Date: 20090728
  Receipt Date: 20090721
  Transmission Date: 20100115
  Serious: Yes (Hospitalization)
  Sender: FDA-Public Use
  Company Number: NO-JNJFOC-20090609095

PATIENT
  Age: 77 Year
  Sex: Female

DRUGS (4)
  1. TARIVID [Suspect]
     Indication: URINARY TRACT INFECTION
     Route: 048
  2. MAREVAN [Interacting]
     Indication: ATRIAL FLUTTER
     Route: 065
  3. SOTALOL HCL [Concomitant]
     Route: 048
  4. COAPROVEL [Concomitant]
     Indication: HYPERTENSION
     Dosage: 150/12.5 MG
     Route: 048

REACTIONS (3)
  - ANAEMIA [None]
  - DRUG INTERACTION [None]
  - URINARY BLADDER HAEMORRHAGE [None]
